FAERS Safety Report 5083396-X (Version None)
Quarter: 2006Q3

REPORT INFORMATION
  Report Type: 
  Country: None (occurrence: None)
  Receive Date: 20060816
  Receipt Date: 20060816
  Transmission Date: 20061208
  Serious: Yes (Hospitalization)
  Sender: FDA-Public Use
  Company Number: None

PATIENT
  Sex: Female

DRUGS (2)
  1. INTRON A [Suspect]
     Dosage: 19MIL UNITS TIW SQ
     Route: 058
  2. INTRON A [Suspect]
     Dosage: 15MIL UNITS TIW SL
     Route: 060

REACTIONS (4)
  - DEHYDRATION [None]
  - PRURITUS [None]
  - RASH [None]
  - SKIN ULCER [None]
